FAERS Safety Report 6167696-8 (Version None)
Quarter: 2009Q2

REPORT INFORMATION
  Report Type: 
  Country: None (occurrence: None)
  Receive Date: 20090424
  Receipt Date: 20090420
  Transmission Date: 20091009
  Serious: Yes (Hospitalization)
  Sender: FDA-Public Use
  Company Number: US-MERCK-0904USA03204

PATIENT
  Age: 71 Year
  Sex: Male

DRUGS (9)
  1. ZETIA [Suspect]
     Indication: BLOOD CHOLESTEROL
     Route: 048
     Dates: start: 20040101
  2. LEXAPRO [Concomitant]
     Route: 065
  3. PLAVIX [Concomitant]
     Route: 065
  4. NEXIUM [Concomitant]
     Route: 065
  5. XANAX [Concomitant]
     Route: 065
  6. ATENOLOL [Concomitant]
     Route: 065
  7. VITAMIN D (UNSPECIFIED) [Concomitant]
     Route: 065
  8. LASIX [Concomitant]
     Route: 065
  9. POTASSIUM (UNSPECIFIED) [Concomitant]
     Route: 065

REACTIONS (3)
  - ARTERIAL OCCLUSIVE DISEASE [None]
  - HEADACHE [None]
  - THROAT LESION [None]
